FAERS Safety Report 22063186 (Version 3)
Quarter: 2025Q2

REPORT INFORMATION
  Report Type: Report from Study
  Country: US (occurrence: US)
  Receive Date: 20230306
  Receipt Date: 20250604
  Transmission Date: 20250717
  Serious: Yes (Hospitalization, Other)
  Sender: ABBVIE
  Company Number: US-ABBVIE-4327050

PATIENT
  Sex: Female

DRUGS (2)
  1. SKYRIZI [Suspect]
     Active Substance: RISANKIZUMAB-RZAA
     Indication: Crohn^s disease
     Route: 058
  2. SKYRIZI [Suspect]
     Active Substance: RISANKIZUMAB-RZAA
     Indication: Crohn^s disease
     Route: 042
     Dates: start: 20221011

REACTIONS (9)
  - Pelvic pain [Unknown]
  - Device loosening [Not Recovered/Not Resolved]
  - Crohn^s disease [Unknown]
  - Abdominal pain [Unknown]
  - Pelvic abscess [Unknown]
  - Pelvic fluid collection [Unknown]
  - Pneumoperitoneum [Unknown]
  - Pelvic cyst [Unknown]
  - Device physical property issue [Not Recovered/Not Resolved]
